FAERS Safety Report 7649731-0 (Version None)
Quarter: 2011Q3

REPORT INFORMATION
  Report Type: 
  Country: None (occurrence: None)
  Receive Date: 20110802
  Receipt Date: 20110725
  Transmission Date: 20111222
  Serious: Yes (Disabling)
  Sender: FDA-Public Use
  Company Number: US-KINGPHARMUSA00001-K201100877

PATIENT
  Sex: Male
  Weight: 68.027 kg

DRUGS (5)
  1. LORAZEPAM [Concomitant]
     Indication: INSOMNIA
     Dosage: UNK
     Dates: start: 20040101
  2. CRESTOR [Concomitant]
     Indication: BLOOD CHOLESTEROL INCREASED
     Dosage: UNK
     Dates: start: 20040101
  3. LEVOXYL [Suspect]
     Dosage: 125 MCG, QD
     Dates: start: 20110716
  4. LEVOXYL [Suspect]
     Dosage: 112 MCG, QD
     Dates: start: 20110701, end: 20110715
  5. LEVOXYL [Suspect]
     Indication: HYPOTHYROIDISM
     Dosage: 125 MCG, QD
     Route: 048
     Dates: start: 19970101, end: 20110701

REACTIONS (7)
  - PALPITATIONS [None]
  - AGEUSIA [None]
  - BLOOD CHOLESTEROL INCREASED [None]
  - INSOMNIA [None]
  - DRY THROAT [None]
  - RASH [None]
  - DYSPNOEA [None]
